FAERS Safety Report 8961248 (Version 1)
Quarter: 2012Q4

REPORT INFORMATION
  Report Type: 
  Country: DE (occurrence: DE)
  Receive Date: 20121213
  Receipt Date: 20121213
  Transmission Date: 20130627
  Serious: Yes (Other)
  Sender: FDA-Public Use
  Company Number: DE-BAYER-2011-096090

PATIENT
  Age: 26 Year
  Sex: Female
  Weight: 76 kg

DRUGS (1)
  1. MIRENA [Suspect]
     Dosage: UNK

REACTIONS (5)
  - Pregnancy with contraceptive device [Recovered/Resolved]
  - Device dislocation [Recovering/Resolving]
  - Drug ineffective [None]
  - Placenta praevia haemorrhage [None]
  - Premature delivery [None]
